FAERS Safety Report 17375900 (Version 1)
Quarter: 2020Q1

REPORT INFORMATION
  Report Type: Other
  Country: PL (occurrence: PL)
  Receive Date: 20200206
  Receipt Date: 20200206
  Transmission Date: 20200409
  Serious: Yes (Other)
  Sender: FDA-Public Use
  Company Number: PL-AJANTA PHARMA USA INC.-2079883

PATIENT
  Age: 68 Year
  Sex: Female

DRUGS (7)
  1. BISOPROLOL [Concomitant]
     Active Substance: BISOPROLOL
  2. POTASSIUM SALTS [Concomitant]
     Active Substance: UNSPECIFIED INGREDIENT
  3. TRAMADOL. [Concomitant]
     Active Substance: TRAMADOL
  4. CHONDROITIN [Concomitant]
     Active Substance: CHONDROITIN
  5. DULOXETINE (ANDA 208706) [Suspect]
     Active Substance: DULOXETINE
  6. PROPAFENONE. [Suspect]
     Active Substance: PROPAFENONE
  7. RIVAROXABAN [Concomitant]
     Active Substance: RIVAROXABAN

REACTIONS (2)
  - Drug interaction [Unknown]
  - Granulocytopenia [Unknown]
